FAERS Safety Report 16470345 (Version 1)
Quarter: 2019Q2

REPORT INFORMATION
  Report Type: Spontaneous
  Country: US (occurrence: US)
  Receive Date: 20190624
  Receipt Date: 20190624
  Transmission Date: 20190711
  Serious: No
  Sender: FDA-Public Use
  Company Number: US-PFIZER INC-2019268981

PATIENT
  Age: 39 Year
  Sex: Male

DRUGS (1)
  1. DEPO-TESTOSTERONE [Suspect]
     Active Substance: TESTOSTERONE CYPIONATE
     Dosage: 150 MG, UNK (INJECT 0.75 ML (150 MG 10 ML TOTAL) INTO THE MUSCLE EVERY 14 (FOURTEEN) DAYS)
     Route: 030

REACTIONS (1)
  - Arthralgia [Unknown]
